FAERS Safety Report 7037542-9 (Version None)
Quarter: 2010Q4

REPORT INFORMATION
  Report Type: 
  Country: None (occurrence: None)
  Receive Date: 20101011
  Receipt Date: 20100930
  Transmission Date: 20110411
  Serious: Yes (Hospitalization)
  Sender: FDA-Public Use
  Company Number: JP-JNJFOC-20101001000

PATIENT
  Age: 57 Year
  Sex: Female
  Weight: 53 kg

DRUGS (7)
  1. REMICADE [Suspect]
     Indication: RHEUMATOID ARTHRITIS
     Dosage: A TOTAL OF 5 INFUSIONS
     Route: 042
  2. METHOTREXATE [Concomitant]
     Indication: RHEUMATOID ARTHRITIS
     Route: 048
  3. RHEUMATREX [Concomitant]
     Indication: RHEUMATOID ARTHRITIS
     Route: 048
  4. CELECOX [Concomitant]
     Route: 048
  5. FASTIC [Concomitant]
     Route: 048
  6. ACTEMRA [Concomitant]
     Indication: SAPHO SYNDROME
  7. ACTEMRA [Concomitant]
     Indication: RHEUMATOID ARTHRITIS

REACTIONS (1)
  - SAPHO SYNDROME [None]
